FAERS Safety Report 8843874 (Version 2)
Quarter: 2012Q4

REPORT INFORMATION
  Report Type: 
  Country: US (occurrence: US)
  Receive Date: 20121016
  Receipt Date: 20121129
  Transmission Date: 20130627
  Serious: No
  Sender: FDA-Public Use
  Company Number: US-PFIZER INC-2012254365

PATIENT
  Age: 52 Year
  Sex: Female
  Weight: 110.2 kg

DRUGS (17)
  1. DAYPRO [Suspect]
     Indication: JOINT INFLAMMATION
     Dosage: 600 mg, 2x/day
     Route: 048
     Dates: end: 201209
  2. DAYPRO [Suspect]
     Dosage: 600 mg, 1x/day
     Route: 048
     Dates: start: 201209
  3. LYRICA [Concomitant]
     Dosage: UNK
  4. ZANAFLEX [Concomitant]
     Dosage: UNK
  5. LIVALO [Concomitant]
     Dosage: UNK
  6. ALER-TAB [Concomitant]
     Indication: ALLERGY
     Dosage: UNK
  7. SAVELLA [Concomitant]
     Dosage: UNK
  8. ASPIRIN [Concomitant]
     Dosage: 81 mg
  9. ASMANEX [Concomitant]
     Dosage: UNK
  10. POLYETHYLENE GLYCOL 3350 [Concomitant]
     Dosage: UNK
  11. METFORMIN [Concomitant]
     Dosage: UNK
  12. ZETIA [Concomitant]
     Dosage: UNK
  13. VITAMIN D [Concomitant]
     Dosage: UNK
  14. MULTIVITAMINS [Concomitant]
     Dosage: UNK
  15. FISH OIL [Concomitant]
     Dosage: UNK
  16. MAXALT [Concomitant]
     Indication: MIGRAINE
     Dosage: UNK
  17. VERAPAMIL [Concomitant]
     Dosage: UNK

REACTIONS (2)
  - Blood cholesterol increased [Unknown]
  - Pain [Not Recovered/Not Resolved]
